FAERS Safety Report 15656680 (Version 3)
Quarter: 2019Q1

REPORT INFORMATION
  Report Type: Report from Study
  Country: US (occurrence: US)
  Receive Date: 20181126
  Receipt Date: 20190222
  Transmission Date: 20190417
  Serious: Yes (Hospitalization, Other)
  Sender: FDA-Public Use
  Company Number: US-JNJFOC-20181129512

PATIENT
  Age: 85 Year
  Sex: Male
  Weight: 113 kg

DRUGS (25)
  1. CENTRUM SILVER [Concomitant]
     Active Substance: MINERALS\VITAMINS
  2. ASMANEX [Concomitant]
     Active Substance: MOMETASONE FUROATE
  3. IPRATROPIUM/ALBUTEROL [Concomitant]
     Active Substance: ALBUTEROL\IPRATROPIUM
  4. ZOCOR [Concomitant]
     Active Substance: SIMVASTATIN
     Route: 048
  5. SIMVASTATIN. [Concomitant]
     Active Substance: SIMVASTATIN
     Route: 065
  6. TAMSULOSIN [Concomitant]
     Active Substance: TAMSULOSIN
  7. DUONEB [Concomitant]
     Active Substance: ALBUTEROL SULFATE\IPRATROPIUM BROMIDE
  8. FLOMAX [Concomitant]
     Active Substance: TAMSULOSIN HYDROCHLORIDE
     Route: 048
  9. IMBRUVICA [Suspect]
     Active Substance: IBRUTINIB
     Indication: CHRONIC LYMPHOCYTIC LEUKAEMIA
     Route: 048
     Dates: start: 20181015, end: 2018
  10. PRINIVIL [Concomitant]
     Active Substance: LISINOPRIL
     Route: 048
  11. MYRBETRIQ [Concomitant]
     Active Substance: MIRABEGRON
  12. CLINDAMYCIN HYDROCHLORIDE. [Concomitant]
     Active Substance: CLINDAMYCIN HYDROCHLORIDE
  13. ZESTRIL [Concomitant]
     Active Substance: LISINOPRIL
  14. TYLENOL [Concomitant]
     Active Substance: ACETAMINOPHEN
     Indication: PAIN
  15. SINGULAIR [Concomitant]
     Active Substance: MONTELUKAST SODIUM
  16. VENTOLIN HFA [Concomitant]
     Active Substance: ALBUTEROL SULFATE
  17. IMBRUVICA [Suspect]
     Active Substance: IBRUTINIB
     Indication: CHRONIC LYMPHOCYTIC LEUKAEMIA
     Route: 048
     Dates: start: 20181005
  18. ZOSYN [Suspect]
     Active Substance: PIPERACILLIN SODIUM\TAZOBACTAM SODIUM
     Indication: TOOTH INFECTION
     Route: 065
     Dates: end: 201811
  19. ALBUTEROL. [Concomitant]
     Active Substance: ALBUTEROL
     Indication: WHEEZING
  20. MULTIVITAMINS [Concomitant]
     Active Substance: VITAMINS
     Route: 048
  21. IMBRUVICA [Suspect]
     Active Substance: IBRUTINIB
     Indication: WALDENSTROM^S MACROGLOBULINAEMIA
     Route: 048
     Dates: start: 20181005
  22. VANCOMYCIN [Suspect]
     Active Substance: VANCOMYCIN
     Indication: TOOTH INFECTION
     Route: 065
     Dates: end: 201811
  23. IMBRUVICA [Suspect]
     Active Substance: IBRUTINIB
     Indication: WALDENSTROM^S MACROGLOBULINAEMIA
     Route: 048
     Dates: start: 20181015, end: 2018
  24. IRON [Concomitant]
     Active Substance: IRON
  25. VICTOZA [Concomitant]
     Active Substance: LIRAGLUTIDE

REACTIONS (31)
  - Dermatochalasis [Unknown]
  - Erythema [Recovering/Resolving]
  - Pneumonia [Unknown]
  - Gastrointestinal haemorrhage [Unknown]
  - Swelling face [Recovering/Resolving]
  - Oral pain [Recovering/Resolving]
  - Posterior capsule opacification [Unknown]
  - Atrial fibrillation [Unknown]
  - Hyponatraemia [Unknown]
  - Coagulopathy [Unknown]
  - Fall [Unknown]
  - Oral infection [Unknown]
  - Headache [Unknown]
  - Hypertension [Unknown]
  - Presbyopia [Unknown]
  - Atrioventricular block first degree [Unknown]
  - Arteriosclerosis coronary artery [Unknown]
  - Tooth abscess [Recovered/Resolved]
  - Cellulitis [Recovering/Resolving]
  - Pyrexia [Recovered/Resolved]
  - Vitamin B12 deficiency [Recovered/Resolved]
  - Hyperlipidaemia [Unknown]
  - Cystoid macular oedema [Unknown]
  - Subdural haematoma [Recovering/Resolving]
  - Oedema peripheral [Unknown]
  - Mouth swelling [Recovering/Resolving]
  - Cataract [Unknown]
  - Systemic infection [Recovered/Resolved]
  - Rash [Unknown]
  - Rectal haemorrhage [Unknown]
  - Disease progression [Unknown]

NARRATIVE: CASE EVENT DATE: 201811
